FAERS Safety Report 20632321 (Version 1)
Quarter: 2022Q1

REPORT INFORMATION
  Report Type: Spontaneous
  Country: HR (occurrence: HR)
  Receive Date: 20220324
  Receipt Date: 20220324
  Transmission Date: 20220423
  Serious: Yes (Other)
  Sender: FDA-Public Use
  Company Number: None

PATIENT
  Age: 25 Year
  Sex: Male

DRUGS (1)
  1. TEGRETOL XR [Suspect]
     Active Substance: CARBAMAZEPINE
     Indication: Product used for unknown indication
     Dosage: 12000 MG, QD
     Route: 048
     Dates: start: 20210925, end: 20210925

REACTIONS (8)
  - Drug abuse [Unknown]
  - Overdose [Unknown]
  - Irritability [Unknown]
  - Disorientation [Unknown]
  - Hallucination [Unknown]
  - Aggression [Unknown]
  - Somnolence [Unknown]
  - Confusional state [Unknown]

NARRATIVE: CASE EVENT DATE: 20210925
